FAERS Safety Report 5465674-5 (Version None)
Quarter: 2007Q3

REPORT INFORMATION
  Report Type: 
  Country: None (occurrence: None)
  Receive Date: 20070924
  Receipt Date: 20070913
  Transmission Date: 20080115
  Serious: Yes (Hospitalization)
  Sender: FDA-Public Use
  Company Number: GB-ROCHE-514923

PATIENT
  Age: 74 Year
  Sex: Male
  Weight: 65.1 kg

DRUGS (4)
  1. CAPECITABINE [Suspect]
     Indication: COLON CANCER
     Dosage: TREATMENT INTERRUPTED. CURRENT CYCLE NUMBER 3
     Route: 048
     Dates: start: 20070704
  2. BEVACIZUMAB [Suspect]
     Indication: COLON CANCER
     Dosage: TREATMENT INTERRUPTED. CURRENT CYCLE NUMBER 3
     Route: 042
     Dates: start: 20070704
  3. ATENOLOL [Suspect]
     Indication: DRUG USE FOR UNKNOWN INDICATION
     Dosage: BETA BLOCKER
     Route: 065
  4. SIMVASTATIN [Suspect]
     Indication: DRUG USE FOR UNKNOWN INDICATION
     Dosage: LIPID REGULATING DRUG
     Route: 065

REACTIONS (1)
  - PANCREATITIS [None]
